FAERS Safety Report 21839290 (Version 1)
Quarter: 2023Q1

REPORT INFORMATION
  Report Type: Spontaneous
  Country: US (occurrence: None)
  Receive Date: 20230107
  Receipt Date: 20230107
  Transmission Date: 20230417
  Serious: Yes (Hospitalization)
  Sender: FDA-Public Use
  Company Number: None

PATIENT
  Age: 74 Year
  Sex: Male
  Weight: 79 kg

DRUGS (2)
  1. AMIODARONE [Suspect]
     Active Substance: AMIODARONE
     Indication: Atrial fibrillation
     Dosage: 1 TAB EVERY DAY PO
     Route: 048
     Dates: start: 20171020, end: 20220918
  2. COREG [Suspect]
     Active Substance: CARVEDILOL

REACTIONS (7)
  - Cardiogenic shock [None]
  - Pulmonary oedema [None]
  - Thrombocytopenia [None]
  - Dialysis [None]
  - International normalised ratio abnormal [None]
  - Blood potassium abnormal [None]
  - Laboratory test interference [None]

NARRATIVE: CASE EVENT DATE: 20220918
